FAERS Safety Report 6814392-7 (Version None)
Quarter: 2010Q3

REPORT INFORMATION
  Report Type: 
  Country: None (occurrence: None)
  Receive Date: 20100702
  Receipt Date: 20100623
  Transmission Date: 20110219
  Serious: Yes (Other)
  Sender: FDA-Public Use
  Company Number: KR-BRISTOL-MYERS SQUIBB COMPANY-15164163

PATIENT
  Sex: Male

DRUGS (9)
  1. IRBESARTAN [Suspect]
     Route: 050
  2. METFORMIN HCL [Suspect]
     Route: 050
  3. AMLODIPINE [Suspect]
     Route: 050
  4. ASPIRIN [Suspect]
     Route: 050
  5. CARVEDILOL [Suspect]
     Route: 050
  6. GLIBENCLAMIDE [Suspect]
     Route: 050
  7. HYDROCHLOROTHIAZIDE [Suspect]
     Route: 050
  8. RAMIPRIL [Suspect]
     Route: 050
  9. TRIAZOLAM [Suspect]
     Route: 050

REACTIONS (5)
  - CAESAREAN SECTION [None]
  - DRUG EXPOSURE DURING PREGNANCY [None]
  - NORMAL NEWBORN [None]
  - PLACENTA PRAEVIA [None]
  - PREGNANCY [None]
